FAERS Safety Report 11090689 (Version 1)
Quarter: 2015Q2

REPORT INFORMATION
  Report Type: Spontaneous
  Country: US (occurrence: US)
  Receive Date: 20150505
  Receipt Date: 20150505
  Transmission Date: 20150821
  Serious: No
  Sender: FDA-Public Use
  Company Number: US-ASTRAZENECA-2015SE35126

PATIENT
  Age: 57 Year
  Sex: Female
  Weight: 59.2 kg

DRUGS (2)
  1. FASLODEX [Suspect]
     Active Substance: FULVESTRANT
     Indication: BREAST CANCER METASTATIC
     Route: 030
     Dates: start: 201309
  2. IBRANCE [Concomitant]
     Active Substance: PALBOCICLIB
     Route: 048

REACTIONS (3)
  - Hepatic lesion [Unknown]
  - Depression [Unknown]
  - Musculoskeletal chest pain [Unknown]
